FAERS Safety Report 4646645-5 (Version None)
Quarter: 2005Q2

REPORT INFORMATION
  Report Type: 
  Country: None (occurrence: None)
  Receive Date: 20050427
  Receipt Date: 20050426
  Transmission Date: 20051028
  Serious: Yes (Other)
  Sender: FDA-Public Use
  Company Number: PHRM2005FR01374

PATIENT
  Age: 58 Year
  Sex: Male

DRUGS (2)
  1. ALLOPURINOL [Concomitant]
     Indication: HYPERURICAEMIA
     Dosage: 200 MG/DAY
     Route: 048
     Dates: start: 19930101
  2. NISISCO [Suspect]
     Dosage: 1 DF, QD
     Dates: start: 20031103, end: 20040119

REACTIONS (4)
  - BLOOD CREATININE INCREASED [None]
  - DEHYDRATION [None]
  - GASTROENTERITIS [None]
  - RENAL FAILURE ACUTE [None]
